FAERS Safety Report 12652291 (Version 1)
Quarter: 2016Q3

REPORT INFORMATION
  Report Type: Report from Study
  Country: GB (occurrence: GB)
  Receive Date: 20160815
  Receipt Date: 20160815
  Transmission Date: 20161109
  Serious: Yes (Other)
  Sender: FDA-Public Use
  Company Number: GB-BAYER-2016-154570

PATIENT
  Age: 25 Year
  Sex: Female

DRUGS (2)
  1. MIRENA [Suspect]
     Active Substance: LEVONORGESTREL
     Indication: CONTRACEPTION
     Dosage: 20 MCG/24HR, CONT
     Route: 015
     Dates: start: 20150107, end: 20150626
  2. CITALOPRAM [Concomitant]
     Active Substance: CITALOPRAM HYDROBROMIDE
     Dosage: CITALOPRAM 40MG (USE ON A REGULAR BASIS)

REACTIONS (6)
  - Deep vein thrombosis [None]
  - Vascular pain [None]
  - Device expulsion [None]
  - Rash [None]
  - Pain in extremity [None]
  - Vasodilatation [None]

NARRATIVE: CASE EVENT DATE: 20150626
